FAERS Safety Report 24669612 (Version 1)
Quarter: 2024Q4

REPORT INFORMATION
  Report Type: Report from Study
  Country: US (occurrence: US)
  Receive Date: 20241127
  Receipt Date: 20241127
  Transmission Date: 20250115
  Serious: Yes (Other)
  Sender: ROCHE
  Company Number: US-ROCHE-10000046318

PATIENT
  Age: 41 Year
  Sex: Female
  Weight: 49.9 kg

DRUGS (16)
  1. OCREVUS [Suspect]
     Active Substance: OCRELIZUMAB
     Indication: Multiple sclerosis
     Route: 042
     Dates: start: 20240409
  2. GABAPENTIN [Concomitant]
     Active Substance: GABAPENTIN
     Route: 048
     Dates: start: 202403
  3. MODAFINIL [Concomitant]
     Active Substance: MODAFINIL
     Indication: Fatigue
     Route: 048
     Dates: start: 202403
  4. MIRABEGRON [Concomitant]
     Active Substance: MIRABEGRON
     Indication: Urinary incontinence
     Route: 048
     Dates: start: 202403
  5. LEVOTHYROXINE [Concomitant]
     Active Substance: LEVOTHYROXINE
     Indication: Hypothyroidism
     Route: 048
     Dates: start: 2014
  6. LEVOTHYROXINE [Concomitant]
     Active Substance: LEVOTHYROXINE
     Indication: Autoimmune thyroiditis
  7. DOCUSATE [Concomitant]
     Active Substance: DOCUSATE
  8. LAMOTRIGINE [Concomitant]
     Active Substance: LAMOTRIGINE
     Indication: Anxiety
     Route: 048
     Dates: start: 2023
  9. LAMOTRIGINE [Concomitant]
     Active Substance: LAMOTRIGINE
     Indication: Depression
  10. HUMALOG [Concomitant]
     Active Substance: INSULIN LISPRO
     Indication: Type 1 diabetes mellitus
     Dosage: INSULIN PUMP - 100 UNITS PER DAY
     Route: 058
     Dates: start: 1994
  11. CYMBALTA [Concomitant]
     Active Substance: DULOXETINE HYDROCHLORIDE
  12. GABAPENTIN [Concomitant]
     Active Substance: GABAPENTIN
  13. DULCOLAX [Concomitant]
  14. LIPITOR [Concomitant]
     Active Substance: ATORVASTATIN CALCIUM
  15. MODAFINIL [Concomitant]
     Active Substance: MODAFINIL
  16. MIRABEGRON [Concomitant]
     Active Substance: MIRABEGRON

REACTIONS (19)
  - Dysarthria [Unknown]
  - Hypoaesthesia [Not Recovered/Not Resolved]
  - Muscular weakness [Not Recovered/Not Resolved]
  - Dysgraphia [Not Recovered/Not Resolved]
  - Hemiparesis [Not Recovered/Not Resolved]
  - Fall [Unknown]
  - Urinary tract infection [Recovered/Resolved]
  - Drug ineffective [Unknown]
  - Pollakiuria [Not Recovered/Not Resolved]
  - Balance disorder [Not Recovered/Not Resolved]
  - Anxiety [Unknown]
  - Multiple sclerosis [Unknown]
  - Stress [Not Recovered/Not Resolved]
  - Influenza [Unknown]
  - Fracture [Recovered/Resolved]
  - Neuralgia [Not Recovered/Not Resolved]
  - Vitamin D decreased [Not Recovered/Not Resolved]
  - Blood cholesterol increased [Not Recovered/Not Resolved]
  - Fatigue [Not Recovered/Not Resolved]

NARRATIVE: CASE EVENT DATE: 20240601
